FAERS Safety Report 21803744 (Version 1)
Quarter: 2023Q1

REPORT INFORMATION
  Report Type: Report from Study
  Country: US (occurrence: US)
  Receive Date: 20230102
  Receipt Date: 20230102
  Transmission Date: 20230417
  Serious: No
  Sender: FDA-Public Use
  Company Number: US-ABBVIE-22K-163-4488122-00

PATIENT
  Age: 53 Year
  Sex: Male

DRUGS (1)
  1. SKYRIZI [Suspect]
     Active Substance: RISANKIZUMAB-RZAA
     Indication: Psoriasis
     Dosage: FORM STRENGTH: 150 MG?LAST ADMINISTRATION DATE:2022:?SKYRIZI 150 MG/ML INJECT 1 PEN SQ AT WEEK 0,...
     Route: 058
     Dates: start: 202206

REACTIONS (3)
  - Therapeutic product effect incomplete [Unknown]
  - Erythema [Unknown]
  - Pruritus [Unknown]

NARRATIVE: CASE EVENT DATE: 20220727
